FAERS Safety Report 4947576-3 (Version None)
Quarter: 2006Q1

REPORT INFORMATION
  Report Type: 
  Country: None (occurrence: None)
  Receive Date: 20060320
  Receipt Date: 20060306
  Transmission Date: 20060701
  Serious: Yes (Hospitalization)
  Sender: FDA-Public Use
  Company Number: JP-JNJFOC-20060205027

PATIENT
  Sex: Female

DRUGS (12)
  1. LEUSTATIN [Suspect]
     Route: 042
  2. LEUSTATIN [Suspect]
     Indication: EXTRANODAL MARGINAL ZONE B-CELL LYMPHOMA (MALT TYPE)
     Route: 042
  3. DANAZOL [Concomitant]
     Indication: IDIOPATHIC THROMBOCYTOPENIC PURPURA
     Route: 048
  4. PREDNISOLONE [Concomitant]
     Indication: IDIOPATHIC THROMBOCYTOPENIC PURPURA
     Route: 048
  5. SUCRALFATE [Concomitant]
     Indication: GASTRIC ULCER
     Route: 048
  6. FAMOTIDINE [Concomitant]
     Indication: GASTRIC ULCER
     Route: 048
  7. MAGNESIUM OXIDE [Concomitant]
     Indication: CONSTIPATION
     Route: 048
  8. FUROSEMIDE [Concomitant]
     Indication: CARDIAC FAILURE
     Route: 048
  9. FLUCONAZOLE [Concomitant]
     Indication: INFECTION PROPHYLAXIS
     Route: 048
  10. VALSARTAN [Concomitant]
     Indication: HYPERTENSION
     Route: 048
  11. SULFAMETHOXAZOLE + TRIMETHOPRIM [Concomitant]
  12. SULFAMETHOXAZOLE + TRIMETHOPRIM [Concomitant]
     Indication: INFECTION PROPHYLAXIS

REACTIONS (2)
  - GASTRIC HAEMORRHAGE [None]
  - PANCYTOPENIA [None]
